FAERS Safety Report 24913888 (Version 3)
Quarter: 2025Q1

REPORT INFORMATION
  Report Type: Spontaneous
  Country: US (occurrence: US)
  Receive Date: 20250202
  Receipt Date: 20250205
  Transmission Date: 20250408
  Serious: Yes (Other)
  Sender: AMGEN
  Company Number: US-AMGEN-USASP2025020108

PATIENT
  Age: 75 Year
  Sex: Female

DRUGS (1)
  1. EVENITY [Suspect]
     Active Substance: ROMOSOZUMAB-AQQG
     Indication: Osteoporosis postmenopausal
     Dosage: UNK UNK, QMO
     Route: 065

REACTIONS (9)
  - Medical device implantation [Unknown]
  - Intervertebral disc degeneration [Unknown]
  - Pain [Unknown]
  - Hypertension [Unknown]
  - C-reactive protein increased [Unknown]
  - Back pain [Unknown]
  - Peripheral swelling [Unknown]
  - Swelling face [Unknown]
  - Red blood cell sedimentation rate increased [Unknown]

NARRATIVE: CASE EVENT DATE: 20241201
